FAERS Safety Report 6913999-6 (Version None)
Quarter: 2010Q3

REPORT INFORMATION
  Report Type: 
  Country: None (occurrence: None)
  Receive Date: 20100809
  Receipt Date: 20100726
  Transmission Date: 20110219
  Serious: Yes (Other)
  Sender: FDA-Public Use
  Company Number: PHHY2010US48995

PATIENT
  Sex: Female

DRUGS (8)
  1. DIOVAN [Suspect]
  2. VALTURNA [Suspect]
  3. BYSTOLIC [Suspect]
     Dosage: ONCE A DAY IN THE MORNING
  4. LISINOPRIL [Suspect]
     Dosage: ONCE A DAY IN THE MORNING
  5. ATENOLOL [Suspect]
     Dosage: ONCE A DAY IN THE MORNING
  6. LABETALOL HCL [Suspect]
     Dosage: TWICE A DAY (MORNING AND EVENING)
  7. LIPITOR [Concomitant]
  8. VIDAZA [Concomitant]

REACTIONS (4)
  - BLOOD PRESSURE DECREASED [None]
  - BLOOD PRESSURE INCREASED [None]
  - HEADACHE [None]
  - MALAISE [None]
